FAERS Safety Report 6807285-2 (Version None)
Quarter: 2010Q2

REPORT INFORMATION
  Report Type: 
  Country: None (occurrence: None)
  Receive Date: 20100628
  Receipt Date: 20100628
  Transmission Date: 20101027
  Serious: Yes (Disabling, Other)
  Sender: FDA-Public Use
  Company Number: None

PATIENT
  Age: 2 Year
  Sex: Male
  Weight: 19.5047 kg

DRUGS (1)
  1. TESTIM [Suspect]
     Indication: BLOOD TESTOSTERONE DECREASED
     Dosage: 2 TUBES PER DAY TOP
     Route: 061

REACTIONS (8)
  - ACCIDENTAL EXPOSURE [None]
  - AGGRESSION [None]
  - BLOOD TESTOSTERONE INCREASED [None]
  - GROWTH ACCELERATED [None]
  - HAIR GROWTH ABNORMAL [None]
  - OSTEOARTHRITIS [None]
  - PENIS DISORDER [None]
  - VIRILISM [None]
